FAERS Safety Report 7940373-6 (Version None)
Quarter: 2011Q4

REPORT INFORMATION
  Report Type: 
  Country: None (occurrence: None)
  Receive Date: 20111127
  Receipt Date: 20111115
  Transmission Date: 20120403
  Serious: Yes (Hospitalization, Other)
  Sender: FDA-Public Use
  Company Number: US-ELI_LILLY_AND_COMPANY-US201102006437

PATIENT
  Sex: Female

DRUGS (9)
  1. PRILOSEC [Concomitant]
     Indication: DYSPEPSIA
  2. FORTEO [Suspect]
     Dosage: 20 UG, DAILY (1/D)
     Route: 065
  3. FORTEO [Suspect]
     Dosage: 20 UG, QD
     Route: 065
  4. DICYCLOMINE [Concomitant]
     Dosage: UNK, TID
  5. FORTEO [Suspect]
     Dosage: 20 UG, QD
     Route: 065
  6. FORTEO [Suspect]
     Dosage: 20 UG, QD
     Route: 065
  7. FORTEO [Suspect]
     Dosage: 20 UG, QD
  8. FORTEO [Suspect]
     Dosage: 20 UG, QD
     Route: 065
  9. FORTEO [Suspect]
     Indication: OSTEOPOROSIS
     Dosage: 20 UG, DAILY (1/D)
     Route: 065
     Dates: start: 20110127

REACTIONS (31)
  - HOSPITALISATION [None]
  - DIZZINESS [None]
  - FATIGUE [None]
  - ARTHRALGIA [None]
  - DIARRHOEA [None]
  - SINUSITIS [None]
  - ABDOMINAL DISCOMFORT [None]
  - PHOTOPHOBIA [None]
  - NAUSEA [None]
  - RASH PRURITIC [None]
  - THIRST [None]
  - FEELING ABNORMAL [None]
  - MALAISE [None]
  - ASTHENIA [None]
  - LOSS OF CONSCIOUSNESS [None]
  - CATARACT [None]
  - ABDOMINAL PAIN UPPER [None]
  - VAGUS NERVE DISORDER [None]
  - ABDOMINAL DISTENSION [None]
  - HYPERSOMNIA [None]
  - NERVOUSNESS [None]
  - PAIN [None]
  - HEADACHE [None]
  - MEMORY IMPAIRMENT [None]
  - GASTRIC DISORDER [None]
  - GAIT DISTURBANCE [None]
  - BOWEL MOVEMENT IRREGULARITY [None]
  - URTICARIA [None]
  - APHAGIA [None]
  - RASH [None]
  - INJECTION SITE HAEMATOMA [None]
